FAERS Safety Report 7332409-0 (Version None)
Quarter: 2011Q1

REPORT INFORMATION
  Report Type: 
  Country: None (occurrence: None)
  Receive Date: 20110304
  Receipt Date: 20110225
  Transmission Date: 20110831
  Serious: Yes (Other)
  Sender: FDA-Public Use
  Company Number: US-JNJFOC-20060307417

PATIENT
  Sex: Female
  Weight: 79.38 kg

DRUGS (7)
  1. EFFEXOR [Concomitant]
  2. VIOXX [Concomitant]
  3. RISPERDAL [Suspect]
     Indication: DEPRESSION
     Route: 048
  4. TRAZODONE [Concomitant]
  5. SEROQUEL [Suspect]
     Indication: DEPRESSION
     Route: 065
  6. LIBRIUM [Concomitant]
  7. PRILOSEC [Concomitant]

REACTIONS (2)
  - ADVERSE EVENT [None]
  - TYPE 2 DIABETES MELLITUS [None]
